FAERS Safety Report 6699903-7 (Version None)
Quarter: 2010Q2

REPORT INFORMATION
  Report Type: 
  Country: None (occurrence: None)
  Receive Date: 20100428
  Receipt Date: 20100412
  Transmission Date: 20101027
  Serious: Yes (Other)
  Sender: FDA-Public Use
  Company Number: US-ASTRAZENECA-2009UW07588

PATIENT
  Age: 788 Month
  Sex: Male
  Weight: 88 kg

DRUGS (6)
  1. SEROQUEL [Suspect]
     Route: 048
     Dates: start: 20080601
  2. SEROQUEL [Suspect]
     Route: 048
     Dates: start: 20081001
  3. SEROQUEL [Suspect]
     Dosage: 400 MG 2 PILLS AT NIGHT
     Route: 048
  4. LITHIUM CARBONATE [Concomitant]
     Dates: start: 20081001
  5. METOPROLOL [Concomitant]
  6. HYDROCHLOROTHIAZIDE [Concomitant]

REACTIONS (5)
  - DIABETES MELLITUS [None]
  - DIABETIC FOOT [None]
  - DIABETIC NEUROPATHY [None]
  - NEUROPATHY PERIPHERAL [None]
  - TYPE 2 DIABETES MELLITUS [None]
